FAERS Safety Report 5015826-3 (Version None)
Quarter: 2006Q2

REPORT INFORMATION
  Report Type: 
  Country: None (occurrence: None)
  Receive Date: 20060525
  Receipt Date: 20060515
  Transmission Date: 20061013
  Serious: Yes (Hospitalization)
  Sender: FDA-Public Use
  Company Number: 2006US000485

PATIENT
  Age: 64 Year
  Sex: Female

DRUGS (16)
  1. PROGRAF [Suspect]
     Indication: PROPHYLAXIS AGAINST TRANSPLANT REJECTION
     Dosage: 3 MG, BID, ORAL
     Route: 048
     Dates: start: 20051020
  2. MYCOPHENOLATE MOFETIL [Suspect]
     Indication: PROPHYLAXIS AGAINST TRANSPLANT REJECTION
     Dosage: BID,ORAL
     Route: 048
     Dates: start: 20051020
  3. PREDNISONE [Suspect]
     Indication: PROPHYLAXIS AGAINST TRANSPLANT REJECTION
     Dosage: 5 MG, UID/QD, ORAL
     Route: 048
     Dates: start: 20051020
  4. BACTRIM [Concomitant]
  5. NORVASC [Concomitant]
  6. METOPROLOL XL (METOPROLOL) [Concomitant]
  7. PROTONIX [Concomitant]
  8. SYNTHROID [Concomitant]
  9. ZOCOR [Concomitant]
  10. LISINOPRIL [Concomitant]
  11. INSULIN SUSPENSION, NPH (INSULIN INJECTION, ISOPHANE) [Concomitant]
  12. INSULIN, REGULAR (INSULIN) [Concomitant]
  13. FOSAMAX (ALDENDRONATTE SODIUM) [Concomitant]
  14. EPOGEN [Concomitant]
  15. MULTIVITAMIN  ^SOLVAY^ (VITAMINS NOS) [Concomitant]
  16. ASPIRIN [Concomitant]

REACTIONS (2)
  - CELLULITIS [None]
  - OSTEOMYELITIS [None]
